FAERS Safety Report 15335066 (Version 1)
Quarter: 2018Q3

REPORT INFORMATION
  Report Type: Report from Study
  Country: IN (occurrence: IN)
  Receive Date: 20180830
  Receipt Date: 20180830
  Transmission Date: 20181010
  Serious: Yes (Other)
  Sender: FDA-Public Use
  Company Number: IN-JNJFOC-20180841003

PATIENT
  Sex: Female

DRUGS (1)
  1. TOPIRAMATE. [Suspect]
     Active Substance: TOPIRAMATE
     Indication: EPILEPSY
     Route: 048

REACTIONS (3)
  - Abortion spontaneous [Recovered/Resolved]
  - Foetal death [Unknown]
  - Exposure during pregnancy [Recovered/Resolved]
